FAERS Safety Report 17980512 (Version 1)
Quarter: 2020Q3

REPORT INFORMATION
  Report Type: Spontaneous
  Country: TR (occurrence: TR)
  Receive Date: 20200704
  Receipt Date: 20200704
  Transmission Date: 20201103
  Serious: Yes (Death, Other)
  Sender: FDA-Public Use
  Company Number: TR-SUN PHARMACEUTICAL INDUSTRIES LTD-2020RR-252376

PATIENT
  Age: 58 Year
  Sex: Female

DRUGS (1)
  1. FINGOLIMOD. [Suspect]
     Active Substance: FINGOLIMOD
     Indication: RELAPSING-REMITTING MULTIPLE SCLEROSIS
     Dosage: 0.5 MILLIGRAM, DAILY
     Route: 065
     Dates: start: 201705

REACTIONS (3)
  - Glioblastoma multiforme [Fatal]
  - Multiple sclerosis [Unknown]
  - Lymphopenia [Unknown]

NARRATIVE: CASE EVENT DATE: 201805
